FAERS Safety Report 25362167 (Version 2)
Quarter: 2025Q2

REPORT INFORMATION
  Report Type: Spontaneous
  Country: ES (occurrence: ES)
  Receive Date: 20250527
  Receipt Date: 20250605
  Transmission Date: 20250716
  Serious: Yes (Other)
  Sender: AUROBINDO
  Company Number: ES-Merck Healthcare KGaA-2025017030

PATIENT
  Age: 64 Year

DRUGS (4)
  1. DOCETAXEL [Suspect]
     Active Substance: DOCETAXEL
     Indication: Squamous cell carcinoma of head and neck
     Route: 065
     Dates: start: 202304, end: 202311
  2. CARBOPLATIN [Suspect]
     Active Substance: CARBOPLATIN
     Indication: Squamous cell carcinoma of head and neck
     Route: 065
     Dates: start: 202204, end: 202307
  3. CETUXIMAB [Suspect]
     Active Substance: CETUXIMAB
     Indication: Squamous cell carcinoma of head and neck
     Route: 065
     Dates: start: 202304, end: 202311
  4. CISPLATIN [Suspect]
     Active Substance: CISPLATIN
     Indication: Squamous cell carcinoma of head and neck
     Route: 065
     Dates: start: 202304, end: 202307

REACTIONS (2)
  - Disease progression [Unknown]
  - Skin toxicity [Unknown]
